FAERS Safety Report 11981628 (Version 4)
Quarter: 2016Q2

REPORT INFORMATION
  Report Type: Spontaneous
  Country: ES (occurrence: ES)
  Receive Date: 20160131
  Receipt Date: 20160406
  Transmission Date: 20160815
  Serious: Yes (Hospitalization, Other)
  Sender: FDA-Public Use
  Company Number: PHHY2016ES009413

PATIENT
  Age: 47 Year
  Sex: Female

DRUGS (1)
  1. GILENYA [Suspect]
     Active Substance: FINGOLIMOD HYDROCHLORIDE
     Indication: MULTIPLE SCLEROSIS
     Dosage: 0.5 MG, QD
     Route: 065
     Dates: start: 20151230, end: 20160112

REACTIONS (16)
  - Sensory loss [Unknown]
  - Gait disturbance [Not Recovered/Not Resolved]
  - Nystagmus [Unknown]
  - Dizziness [Unknown]
  - Multiple sclerosis relapse [Unknown]
  - Brain injury [Unknown]
  - Dysarthria [Unknown]
  - Balance disorder [Unknown]
  - Ischaemic stroke [Recovered/Resolved]
  - Dysmetria [Unknown]
  - Motor dysfunction [Unknown]
  - Dysphagia [Unknown]
  - Speech disorder [Unknown]
  - Vertebral artery stenosis [Unknown]
  - Diplopia [Unknown]
  - Hypoaesthesia [Unknown]

NARRATIVE: CASE EVENT DATE: 20160112
